FAERS Safety Report 4634051-9 (Version None)
Quarter: 2005Q2

REPORT INFORMATION
  Report Type: 
  Country: None (occurrence: None)
  Receive Date: 20050413
  Receipt Date: 20050211
  Transmission Date: 20051028
  Serious: Yes (Death, Hospitalization, Other)
  Sender: FDA-Public Use
  Company Number: DK-JNJFOC-20050402252

PATIENT
  Sex: Male

DRUGS (3)
  1. IMODIUM [Suspect]
     Route: 049
  2. CAMPTOSAR [Suspect]
     Dosage: 495, 3 MG DAILY
     Route: 042
  3. CAPECITABINE [Suspect]
     Route: 049

REACTIONS (6)
  - COAGULOPATHY [None]
  - HEPATIC FAILURE [None]
  - ILEUS [None]
  - MULTI-ORGAN FAILURE [None]
  - PNEUMONIA [None]
  - RENAL FAILURE [None]
